FAERS Safety Report 4853590-9 (Version None)
Quarter: 2005Q4

REPORT INFORMATION
  Report Type: 
  Country: None (occurrence: None)
  Receive Date: 20051212
  Receipt Date: 20051130
  Transmission Date: 20060501
  Serious: Yes (Hospitalization)
  Sender: FDA-Public Use
  Company Number: US016450

PATIENT
  Age: 48 Year
  Sex: Male

DRUGS (26)
  1. TRISENOX [Suspect]
     Indication: ACUTE PROMYELOCYTIC LEUKAEMIA
     Dosage: 8.4 MG QD INTRAVENOUS
     Route: 042
     Dates: start: 20050222, end: 20050315
  2. TRISENOX [Suspect]
     Indication: ACUTE PROMYELOCYTIC LEUKAEMIA
     Dosage: 8.4 MG QD INTRAVENOUS
     Route: 042
     Dates: start: 20050425, end: 20050518
  3. CHLORPROMAZINE HCL [Suspect]
     Dosage: 50 MG QD ORAL
     Route: 048
  4. TRIHEXYPHENIDYL HYDROCHLORIDE [Suspect]
     Dosage: 6 MG QD ORAL
     Route: 048
  5. ZOTEPINE [Suspect]
     Dosage: 300 MG QD ORAL
     Route: 048
  6. FLUNITRAZEPAM [Suspect]
     Dosage: 2 MG QD ORAL
     Route: 048
  7. FAMOTIDINE [Suspect]
     Dosage: 20 MG QD ORAL
     Route: 048
     Dates: start: 20040330, end: 20050226
  8. FLUCONAZOLE [Suspect]
     Dosage: 100 MG QD ORAL
     Route: 048
     Dates: start: 20040415, end: 20050226
  9. GABEXATE MESILATE [Concomitant]
  10. ITRACONAZOLE [Concomitant]
  11. LANSOPRAZOLE [Concomitant]
  12. OLANZAPINE [Concomitant]
  13. MAGNESIUM OXIDE [Concomitant]
  14. DIFLUCORTOLONE VALERATE LIDOCAINE [Concomitant]
  15. TAMSULOSIN HCL [Concomitant]
  16. CEFTRIAXONE [Concomitant]
  17. LEVOMEPROMAZINE MALEATE [Concomitant]
  18. TRIAZOLAM [Concomitant]
  19. LEVOFLOXACIN [Concomitant]
  20. ANTIBIOTIC RESISTANT LACTIC ACID BACTERIAE [Concomitant]
  21. ETIZOLAM [Concomitant]
  22. VALACYCLOVIR HCL [Concomitant]
  23. MECOBALAMIN [Concomitant]
  24. ZOLPIDEM TARTRATE [Concomitant]
  25. ZOPICLONE [Concomitant]
  26. MINOCYCLINE HYDROCHLORIDE [Concomitant]

REACTIONS (6)
  - ENTERITIS INFECTIOUS [None]
  - GASTROINTESTINAL DISORDER [None]
  - HAEMOGLOBIN DECREASED [None]
  - HYPERPLASIA [None]
  - ILEUS [None]
  - WHITE BLOOD CELL COUNT DECREASED [None]
